FAERS Safety Report 8314902-7 (Version None)
Quarter: 2012Q2

REPORT INFORMATION
  Report Type: 
  Country: None (occurrence: None)
  Receive Date: 20120426
  Receipt Date: 20120416
  Transmission Date: 20120825
  Serious: Yes (Other)
  Sender: FDA-Public Use
  Company Number: CA-JNJFOC-20120407333

PATIENT
  Sex: Male

DRUGS (1)
  1. STELARA [Suspect]
     Indication: PSORIASIS
     Route: 058
     Dates: start: 20111021

REACTIONS (7)
  - INSOMNIA [None]
  - CHEST PAIN [None]
  - DRUG INEFFECTIVE [None]
  - HEADACHE [None]
  - MALAISE [None]
  - DIZZINESS [None]
  - ARTHRALGIA [None]
